FAERS Safety Report 13095803 (Version 1)
Quarter: 2017Q1

REPORT INFORMATION
  Report Type: Report from Study
  Country: DE (occurrence: DE)
  Receive Date: 20170109
  Receipt Date: 20170109
  Transmission Date: 20170428
  Serious: Yes (Hospitalization)
  Sender: FDA-Public Use
  Company Number: DE-ROCHE-1818680

PATIENT
  Age: 15 Year
  Sex: Male

DRUGS (6)
  1. SOMATROPIN [Suspect]
     Active Substance: SOMATROPIN
     Indication: FAILURE TO THRIVE
     Dosage: 7 DAYS IN A WEEK.
     Route: 058
     Dates: start: 20120404, end: 201210
  2. SOMATROPIN [Suspect]
     Active Substance: SOMATROPIN
     Indication: GROWTH HORMONE DEFICIENCY
     Dosage: 7 DAYS IN A WEEK.
     Route: 058
     Dates: start: 201210, end: 201404
  3. SOMATROPIN [Suspect]
     Active Substance: SOMATROPIN
     Dosage: 7 DAYS IN A WEEK.
     Route: 058
     Dates: start: 201404, end: 201410
  4. SOMATROPIN [Suspect]
     Active Substance: SOMATROPIN
     Dosage: 7 DAYS IN A WEEK.
     Route: 058
     Dates: start: 201410, end: 201604
  5. SOMATROPIN [Suspect]
     Active Substance: SOMATROPIN
     Dosage: 7 DAYS IN A WEEK.
     Route: 058
     Dates: start: 201604
  6. DIFLUCAN [Concomitant]
     Active Substance: FLUCONAZOLE
     Route: 065
     Dates: start: 20120216

REACTIONS (1)
  - Knee deformity [Recovered/Resolved]
